FAERS Safety Report 4430495-9 (Version None)
Quarter: 2004Q3

REPORT INFORMATION
  Report Type: 
  Country: None (occurrence: None)
  Receive Date: 20040721
  Receipt Date: 20031211
  Transmission Date: 20050211
  Serious: Yes (Hospitalization)
  Sender: FDA-Public Use
  Company Number: WAES0312USA01327

PATIENT
  Age: 78 Year
  Sex: Female

DRUGS (5)
  1. VIOXX [Suspect]
     Dosage: 25 MG/DAILY/PO
     Route: 048
  2. HYDRODIURIL [Concomitant]
  3. ZOCOR [Concomitant]
  4. ASPIRIN [Concomitant]
  5. VERAPAMIL [Concomitant]

REACTIONS (2)
  - GASTROINTESTINAL HAEMORRHAGE [None]
  - HYPERTENSION [None]
